FAERS Safety Report 19906504 (Version 1)
Quarter: 2021Q4

REPORT INFORMATION
  Report Type: Spontaneous
  Country: US (occurrence: US)
  Receive Date: 20211001
  Receipt Date: 20211001
  Transmission Date: 20220304
  Serious: No
  Sender: FDA-Public Use
  Company Number: US-SANOFI-00787174

PATIENT
  Sex: Female

DRUGS (1)
  1. NASACORT ALLERGY 24HR [Suspect]
     Active Substance: TRIAMCINOLONE ACETONIDE
     Dosage: 1 ONE SPRAY IN EACH NOSTRIL
     Route: 045

REACTIONS (2)
  - Rhinorrhoea [Recovering/Resolving]
  - Unevaluable event [Unknown]
